FAERS Safety Report 17802848 (Version 1)
Quarter: 2020Q2

REPORT INFORMATION
  Report Type: Spontaneous
  Country: PL (occurrence: PL)
  Receive Date: 20200519
  Receipt Date: 20200519
  Transmission Date: 20200714
  Serious: Yes (Life-Threatening, Hospitalization, Other)
  Sender: FDA-Public Use
  Company Number: PL-ACCORD-182273

PATIENT
  Age: 15 Year
  Sex: Male

DRUGS (3)
  1. METHOTREXATE. [Suspect]
     Active Substance: METHOTREXATE
     Indication: PRODUCT USED FOR UNKNOWN INDICATION
  2. SULFAMETHOXAZOLE/TRIMETHOPRIM [Concomitant]
     Active Substance: SULFAMETHOXAZOLE\TRIMETHOPRIM
  3. PHENOXYMETHYLPENICILLIN [Concomitant]
     Active Substance: PENICILLIN V

REACTIONS (13)
  - Hepatotoxicity [Unknown]
  - Toxoplasmosis [Unknown]
  - Pseudomonas infection [Unknown]
  - Conjunctivitis [Unknown]
  - Epstein-Barr virus infection [Unknown]
  - Pneumonia fungal [Unknown]
  - Staphylococcal infection [Unknown]
  - Sinusitis [Unknown]
  - Enterococcal infection [Unknown]
  - Diarrhoea [Unknown]
  - Skin toxicity [Unknown]
  - Sepsis [Unknown]
  - Blood antidiuretic hormone increased [Unknown]
